FAERS Safety Report 7525948-0 (Version None)
Quarter: 2011Q2

REPORT INFORMATION
  Report Type: 
  Country: None (occurrence: None)
  Receive Date: 20110603
  Receipt Date: 20110603
  Transmission Date: 20111010
  Serious: Yes (Other)
  Sender: FDA-Public Use
  Company Number: None

PATIENT
  Sex: Female
  Weight: 97.977 kg

DRUGS (1)
  1. ONGLYZA [Suspect]
     Indication: DIABETES MELLITUS
     Dosage: ONE DAILY
     Dates: start: 20110404, end: 20110411

REACTIONS (7)
  - MALAISE [None]
  - COUGH [None]
  - OEDEMA MOUTH [None]
  - CHEST PAIN [None]
  - DYSPHONIA [None]
  - SWELLING FACE [None]
  - ABDOMINAL DISCOMFORT [None]
